FAERS Safety Report 9441893 (Version 1)
Quarter: 2013Q3

REPORT INFORMATION
  Report Type: Spontaneous
  Country: JP (occurrence: JP)
  Receive Date: 20130806
  Receipt Date: 20130806
  Transmission Date: 20140515
  Serious: Yes (Other)
  Sender: FDA-Public Use
  Company Number: JP-JNJFOC-20130707924

PATIENT
  Age: 55 Year
  Sex: Female

DRUGS (2)
  1. ITRIZOLE [Suspect]
     Indication: ONYCHOMYCOSIS
     Route: 048
     Dates: start: 20130629, end: 20130705
  2. ITRIZOLE [Suspect]
     Indication: TINEA PEDIS
     Route: 048
     Dates: start: 20130629, end: 20130705

REACTIONS (1)
  - Drug eruption [Recovering/Resolving]
